FAERS Safety Report 4279848-2 (Version None)
Quarter: 2004Q1

REPORT INFORMATION
  Report Type: 
  Country: None (occurrence: None)
  Receive Date: 20040126
  Receipt Date: 20040119
  Transmission Date: 20041129
  Serious: Yes (Hospitalization)
  Sender: FDA-Public Use
  Company Number: GB-JNJFOC-20040103254

PATIENT
  Age: 67 Year
  Sex: Female

DRUGS (3)
  1. REMICADE [Suspect]
     Indication: RHEUMATOID ARTHRITIS
     Dosage: INTRAVENOUS
     Route: 042
     Dates: start: 20020722, end: 20030601
  2. METHOTREXATE [Concomitant]
  3. DICLOFENAC SODIUM [Concomitant]

REACTIONS (1)
  - METASTATIC NEOPLASM [None]
